FAERS Safety Report 8943765 (Version 1)
Quarter: 2012Q4

REPORT INFORMATION
  Report Type: 
  Country: BR (occurrence: BR)
  Receive Date: 20121204
  Receipt Date: 20121204
  Transmission Date: 20130627
  Serious: Yes (Hospitalization)
  Sender: FDA-Public Use
  Company Number: PHHY2012BR103969

PATIENT
  Sex: Male

DRUGS (3)
  1. DIOVAN TRIPLE [Suspect]
     Indication: HYPERTENSION
     Dosage: 1 DF, 1 tablet (valsartan 160 mg, hydrochlorothiazide 12.5 mg and amlopidipine 5 mg) per day
     Route: 048
  2. CAPTOPRIL [Suspect]
     Indication: HYPERTENSION
     Dosage: 50 mg, TID
  3. NIFEDIPINE [Suspect]
     Indication: HYPERTENSION
     Dosage: 20 mg, BID
     Route: 048

REACTIONS (1)
  - Hypertension [Recovering/Resolving]
